FAERS Safety Report 16661083 (Version 1)
Quarter: 2019Q3

REPORT INFORMATION
  Report Type: Spontaneous
  Country: US (occurrence: US)
  Receive Date: 20190802
  Receipt Date: 20190802
  Transmission Date: 20191004
  Serious: No
  Sender: FDA-Public Use
  Company Number: US-009507513-1908USA000799

PATIENT
  Age: 16 Year
  Sex: Female

DRUGS (2)
  1. NEXPLANON [Suspect]
     Active Substance: ETONOGESTREL
     Dosage: UNK
     Route: 059
     Dates: start: 20190724
  2. NEXPLANON [Suspect]
     Active Substance: ETONOGESTREL
     Dosage: 68 MILLIGRAM / 1 IMPLANT SUBDERMALLY EVERY 3 YEARS
     Route: 059
     Dates: start: 20190724, end: 20190724

REACTIONS (4)
  - Device deployment issue [Recovered/Resolved]
  - Device difficult to use [Recovered/Resolved]
  - Device expulsion [Recovered/Resolved]
  - No adverse event [Unknown]

NARRATIVE: CASE EVENT DATE: 20190724
